FAERS Safety Report 19575972 (Version 1)
Quarter: 2021Q3

REPORT INFORMATION
  Report Type: Spontaneous
  Country: US (occurrence: US)
  Receive Date: 20210718
  Receipt Date: 20210718
  Transmission Date: 20211014
  Serious: Yes (Disabling)
  Sender: FDA-Public Use
  Company Number: None

PATIENT
  Age: 62 Year
  Sex: Male
  Weight: 93.15 kg

DRUGS (3)
  1. ELIQUIS [Suspect]
     Active Substance: APIXABAN
     Indication: DEEP VEIN THROMBOSIS
     Dosage: QUANTITY:1 TABLET(S);?
     Route: 048
     Dates: start: 20180914
  2. CPAP MACHINE [Concomitant]
  3. ELIQUIS [Suspect]
     Active Substance: APIXABAN
     Indication: PULMONARY EMBOLISM
     Dosage: QUANTITY:1 TABLET(S);?
     Route: 048
     Dates: start: 20180914

REACTIONS (1)
  - Pain [None]

NARRATIVE: CASE EVENT DATE: 20200801
